FAERS Safety Report 8218446-2 (Version None)
Quarter: 2012Q1

REPORT INFORMATION
  Report Type: 
  Country: None (occurrence: None)
  Receive Date: 20120319
  Receipt Date: 20120316
  Transmission Date: 20120608
  Serious: No
  Sender: FDA-Public Use
  Company Number: US-PFIZER INC-2012061360

PATIENT
  Sex: Female
  Weight: 104.31 kg

DRUGS (3)
  1. CHANTIX [Suspect]
     Dosage: 1 MG, 2X/DAY
     Route: 048
     Dates: start: 20120301, end: 20120315
  2. IBUPROFEN [Concomitant]
     Dosage: 800 MG, 3X/DAY
  3. CHANTIX [Suspect]
     Indication: SMOKING CESSATION THERAPY
     Dosage: 0.5 MG, 1X/DAY
     Route: 048
     Dates: start: 20120304, end: 20120301

REACTIONS (4)
  - FRUSTRATION [None]
  - FEAR [None]
  - NERVOUSNESS [None]
  - SWELLING [None]
